FAERS Safety Report 4889702-0 (Version None)
Quarter: 2006Q1

REPORT INFORMATION
  Report Type: 
  Country: None (occurrence: None)
  Receive Date: 20060124
  Receipt Date: 20051107
  Transmission Date: 20060701
  Serious: Yes (Other)
  Sender: FDA-Public Use
  Company Number: US-GLAXOSMITHKLINE-A0581208A

PATIENT
  Sex: Male

DRUGS (3)
  1. LEXIVA [Suspect]
     Indication: HIV INFECTION
     Route: 065
  2. METHADONE HCL [Concomitant]
  3. ABACAVIR [Concomitant]

REACTIONS (1)
  - STEVENS-JOHNSON SYNDROME [None]
